FAERS Safety Report 18894100 (Version 3)
Quarter: 2021Q1

REPORT INFORMATION
  Report Type: Spontaneous
  Country: JP (occurrence: JP)
  Receive Date: 20210215
  Receipt Date: 20210323
  Transmission Date: 20210420
  Serious: Yes (Hospitalization)
  Sender: FDA-Public Use
  Company Number: JP-PFIZER INC-2021148890

PATIENT
  Sex: Male
  Weight: 67 kg

DRUGS (25)
  1. ARICEPT [Suspect]
     Active Substance: DONEPEZIL HYDROCHLORIDE
     Dosage: 5 MG, 1X/DAY
     Route: 048
  2. PREDONINE [Concomitant]
     Active Substance: PREDNISOLONE
     Dosage: 12.5 MG, 1X/DAY
     Route: 048
  3. ORKEDIA [Concomitant]
     Active Substance: EVOCALCET
     Dosage: 1 MG, 1X/DAY
     Route: 048
  4. AMLODIPINE BESILATE [Suspect]
     Active Substance: AMLODIPINE BESYLATE
     Indication: CEREBRAL INFARCTION
     Dosage: 5 MG, 1X/DAY
     Route: 048
     Dates: start: 20200626, end: 2020
  5. AMLODIPINE BESILATE [Suspect]
     Active Substance: AMLODIPINE BESYLATE
     Indication: HYPERTENSION
     Dosage: 2.5 MG, 1X/DAY
     Route: 048
     Dates: start: 2020
  6. DAIPHEN [Concomitant]
     Active Substance: SULFAMETHOXAZOLE\TRIMETHOPRIM
     Dosage: DOSE AND FREQUENCY UNKNOWN
     Route: 048
     Dates: start: 2020
  7. BROTIZOLAM [Concomitant]
     Active Substance: BROTIZOLAM
     Dosage: 0.25 MG, 1X/DAY
     Route: 048
  8. ARICEPT [Suspect]
     Active Substance: DONEPEZIL HYDROCHLORIDE
     Dosage: 10 MG, 1X/DAY
     Route: 048
     Dates: start: 20200305, end: 2020
  9. CARBOCISTEINE [Concomitant]
     Active Substance: CARBOCYSTEINE
     Dosage: 750 MG, 1X/DAY
     Route: 048
  10. LIDOCAINE. [Concomitant]
     Active Substance: LIDOCAINE
     Dosage: DOSE AND FREQUENCY UNKNOWN
     Route: 062
     Dates: start: 2020
  11. FUROSEMIDE. [Concomitant]
     Active Substance: FUROSEMIDE
     Dosage: 80 MG, 1X/DAY
     Route: 048
     Dates: end: 2020
  12. CILOSTAZOL. [Concomitant]
     Active Substance: CILOSTAZOL
     Dosage: 50 MG, 2X/DAY
     Route: 048
     Dates: end: 2020
  13. ARICEPT [Suspect]
     Active Substance: DONEPEZIL HYDROCHLORIDE
     Dosage: 10 MG, 1X/DAY (5 MG 2 TABLETS)
     Route: 048
     Dates: start: 2020, end: 2020
  14. AMEZINIUM METILSULFATE [Concomitant]
     Active Substance: AMEZINIUM METILSULFATE
     Dosage: DOSE AND FREQUENCY UNKNOWN
     Route: 065
     Dates: start: 2020
  15. LANTHANUM CARBONATE HYDRATE [Concomitant]
     Active Substance: LANTHANUM CARBONATE
     Dosage: 1500 MG, 1X/DAY
     Route: 048
  16. MICARDIS [Suspect]
     Active Substance: TELMISARTAN
     Indication: CEREBRAL INFARCTION
     Dosage: 20 MG, 1X/DAY (0.5 TABLET)
     Route: 048
     Dates: start: 20200811
  17. MICARDIS [Suspect]
     Active Substance: TELMISARTAN
     Indication: HYPERTENSION
  18. ARICEPT [Suspect]
     Active Substance: DONEPEZIL HYDROCHLORIDE
     Dosage: 5 MG, 1X/DAY
     Route: 048
     Dates: end: 20200304
  19. LANSOPRAZOLE. [Concomitant]
     Active Substance: LANSOPRAZOLE
     Dosage: 15 MG, 1X/DAY
     Route: 048
  20. ARICEPT [Suspect]
     Active Substance: DONEPEZIL HYDROCHLORIDE
     Indication: DEMENTIA
     Dosage: 3 MG, 1X/DAY
     Route: 048
  21. AMLODIPINE BESILATE [Suspect]
     Active Substance: AMLODIPINE BESYLATE
     Dosage: 10 MG, 1X/DAY
     Route: 048
  22. CLOPIDOGREL [Suspect]
     Active Substance: CLOPIDOGREL BISULFATE
     Indication: THROMBOTIC CEREBRAL INFARCTION
     Dosage: 50 MG, 1X/DAY (25 MG 2 TABLETS)
     Route: 048
     Dates: start: 20200625
  23. CARBOCISTEINE [Concomitant]
     Active Substance: CARBOCYSTEINE
     Dosage: 500 MG, 1X/DAY
     Route: 048
  24. PREDONINE [Concomitant]
     Active Substance: PREDNISOLONE
     Dosage: 15 MG, 1X/DAY
     Route: 048
     Dates: start: 2020
  25. PREDONINE [Concomitant]
     Active Substance: PREDNISOLONE
     Dosage: 10 MG, 1X/DAY
     Route: 048

REACTIONS (1)
  - Interstitial lung disease [Not Recovered/Not Resolved]

NARRATIVE: CASE EVENT DATE: 20200919
